FAERS Safety Report 6065144-X (Version None)
Quarter: 2009Q1

REPORT INFORMATION
  Report Type: 
  Country: None (occurrence: None)
  Receive Date: 20090204
  Receipt Date: 20090114
  Transmission Date: 20090719
  Serious: Yes (Hospitalization)
  Sender: FDA-Public Use
  Company Number: IL-ROCHE-611307

PATIENT
  Sex: Female

DRUGS (11)
  1. RIBAVIRIN [Suspect]
     Indication: HEPATITIS C
     Route: 048
     Dates: start: 20081029, end: 20090112
  2. RIBAVIRIN [Suspect]
     Route: 048
     Dates: start: 20090118
  3. PEG-INTERFERON ALFA 2A (RO 25-8310) [Suspect]
     Indication: HEPATITIS C
     Route: 058
     Dates: start: 20081029
  4. BLINDED TELAPREVIR [Suspect]
     Indication: HEPATITIS C
     Dosage: DOSE BLINDED
     Route: 048
     Dates: start: 20081029, end: 20090112
  5. FLU VACCINE [Concomitant]
     Route: 058
     Dates: start: 20081031, end: 20081031
  6. DIPYRONE [Concomitant]
     Indication: HEADACHE
     Dosage: FORM: TABLETS AND DROPS. OTHER INDICATIONS: SINUS PAIN AND FEVER.
     Route: 048
     Dates: start: 20081113, end: 20081120
  7. DIPYRONE [Concomitant]
     Dosage: OTHER INDICATIONS: SINUS PAIN AND FEVER.
     Route: 048
     Dates: start: 20081121, end: 20081121
  8. DIPYRONE [Concomitant]
     Dosage: OTHER INDICATIONS: SINUS PAIN AND FEVER.
     Route: 048
     Dates: start: 20081202, end: 20081210
  9. DIPYRONE [Concomitant]
     Dosage: OTHER INDICATIONS: SINUS PAIN AND FEVER.
     Route: 048
     Dates: start: 20081210, end: 20081210
  10. FOLIC ACID [Concomitant]
     Route: 048
     Dates: start: 20081121
  11. TUMS [Concomitant]
     Route: 048
     Dates: start: 20081120

REACTIONS (1)
  - GLOBAL AMNESIA [None]
